FAERS Safety Report 19565188 (Version 2)
Quarter: 2021Q3

REPORT INFORMATION
  Report Type: Report from Study
  Country: US (occurrence: US)
  Receive Date: 20210716
  Receipt Date: 20210720
  Transmission Date: 20211014
  Serious: Yes (Life-Threatening, Hospitalization, Other)
  Sender: FDA-Public Use
  Company Number: US-BRISTOL-MYERS SQUIBB COMPANY-BMS-2021-068065

PATIENT
  Age: 62 Year
  Sex: Male
  Weight: 124 kg

DRUGS (3)
  1. TACROLIMUS. [Suspect]
     Active Substance: TACROLIMUS
     Indication: LUNG TRANSPLANT
     Dosage: 0.5 MILLIGRAM, BID
     Route: 065
  2. MYCOPHENOLATE MOFETIL. [Suspect]
     Active Substance: MYCOPHENOLATE MOFETIL
     Indication: LUNG TRANSPLANT
     Dosage: 1000 MILLIGRAM, BID
     Route: 065
  3. BELATACEPT [Suspect]
     Active Substance: BELATACEPT
     Indication: LUNG TRANSPLANT
     Route: 065

REACTIONS (2)
  - Bronchostenosis [Unknown]
  - Respiratory distress [Unknown]

NARRATIVE: CASE EVENT DATE: 20210710
